FAERS Safety Report 15331075 (Version 2)
Quarter: 2018Q3

REPORT INFORMATION
  Report Type: Report from Study
  Country: None (occurrence: DE)
  Receive Date: 20180829
  Receipt Date: 20180907
  Transmission Date: 20181010
  Serious: Yes (Death, Hospitalization)
  Sender: FDA-Public Use
  Company Number: DE-ABBVIE-18S-062-2467278-00

PATIENT
  Age: 80 Year
  Sex: Male

DRUGS (1)
  1. DUODOPA [Suspect]
     Active Substance: CARBIDOPA\LEVODOPA
     Indication: PARKINSON^S DISEASE
     Dosage: MD 8 ML; CRD 3.5 ML/HR; ED UNKNOWN
     Route: 050
     Dates: start: 20180818

REACTIONS (2)
  - Cerebrovascular accident [Fatal]
  - Hospitalisation [Unknown]

NARRATIVE: CASE EVENT DATE: 20180827
